FAERS Safety Report 5031187-8 (Version None)
Quarter: 2006Q2

REPORT INFORMATION
  Report Type: 
  Country: None (occurrence: None)
  Receive Date: 20060615
  Receipt Date: 20060526
  Transmission Date: 20061013
  Serious: Yes (Other)
  Sender: FDA-Public Use
  Company Number: TNZIE200600053

PATIENT
  Age: 56 Year
  Sex: Female
  Weight: 65 kg

DRUGS (8)
  1. INNOHEP [Suspect]
     Indication: THROMBOSIS PROPHYLAXIS
     Dosage: 3500 IU (3500 IU, ONCE DAILY), SUBCUTANEOUS
     Route: 058
     Dates: start: 20060502, end: 20060509
  2. ZYDOL (TRAMADOL HYDROCHLORIDE) [Concomitant]
  3. DICLOFENAC SODIUM [Concomitant]
  4. ZINACEF [Concomitant]
  5. CIPROFLOXACIN [Concomitant]
  6. FLAGYL [Concomitant]
  7. CEFTAZIDIME PENTAHYDRATE [Concomitant]
  8. GENTAMYCIN (GENTAMYCIN) [Concomitant]

REACTIONS (7)
  - ADRENAL HAEMORRHAGE [None]
  - ADRENOCORTICAL INSUFFICIENCY CHRONIC [None]
  - CHEST PAIN [None]
  - CONTUSION [None]
  - HEPARIN-INDUCED THROMBOCYTOPENIA [None]
  - PNEUMONIA [None]
  - PULMONARY EMBOLISM [None]
